FAERS Safety Report 5749414-8 (Version None)
Quarter: 2008Q2

REPORT INFORMATION
  Report Type: 
  Country: None (occurrence: None)
  Receive Date: 20080527
  Receipt Date: 20080519
  Transmission Date: 20081010
  Serious: Yes (Death)
  Sender: FDA-Public Use
  Company Number: US-ASTRAZENECA-2006UW12279

PATIENT
  Age: 46 Year
  Sex: Female
  Weight: 93.6 kg

DRUGS (9)
  1. SEROQUEL [Suspect]
     Indication: DEPRESSION
     Route: 048
     Dates: start: 20020801, end: 20061001
  2. SEROQUEL [Suspect]
     Indication: SCHIZOPHRENIA
     Route: 048
     Dates: start: 20020801, end: 20061001
  3. SEROQUEL [Suspect]
     Indication: INSOMNIA
     Route: 048
     Dates: start: 20020801, end: 20061001
  4. ZYPREXA [Suspect]
  5. ABILIFY [Concomitant]
     Dates: start: 20040101, end: 20060101
  6. ZYPREXA [Concomitant]
     Dosage: 15-20 MG
  7. WELLBUTRIN [Concomitant]
  8. LEXAPRO [Concomitant]
  9. DEPAKOTE [Concomitant]

REACTIONS (2)
  - DEATH [None]
  - DIABETES MELLITUS [None]
